FAERS Safety Report 26068575 (Version 1)
Quarter: 2025Q4

REPORT INFORMATION
  Report Type: Spontaneous
  Country: JP (occurrence: JP)
  Receive Date: 20251120
  Receipt Date: 20251120
  Transmission Date: 20260117
  Serious: Yes (Hospitalization, Other)
  Sender: GLAXOSMITHKLINE
  Company Number: JP-GSKJP-JP2025JPN147825AA

PATIENT
  Age: 70 Year
  Sex: Female

DRUGS (1)
  1. DAPRODUSTAT [Suspect]
     Active Substance: DAPRODUSTAT
     Dosage: 10 MG, QD

REACTIONS (7)
  - Chronic kidney disease [Unknown]
  - Hypothyroidism [Unknown]
  - Hospitalisation [Unknown]
  - General physical health deterioration [Unknown]
  - Short-bowel syndrome [Unknown]
  - Metabolic acidosis [Unknown]
  - Therapeutic response decreased [Unknown]
